FAERS Safety Report 7805611-9 (Version None)
Quarter: 2011Q4

REPORT INFORMATION
  Report Type: 
  Country: None (occurrence: None)
  Receive Date: 20111010
  Receipt Date: 20110929
  Transmission Date: 20120403
  Serious: Yes (Hospitalization)
  Sender: FDA-Public Use
  Company Number: SE-ASTRAZENECA-2011SE58576

PATIENT
  Age: 82 Year
  Sex: Male

DRUGS (6)
  1. ARICEPT [Suspect]
     Route: 048
     Dates: start: 20100609
  2. ASPIRIN [Concomitant]
  3. FELODIPINE [Concomitant]
     Route: 048
  4. ISOSORBIDMONONITRAT ACCORD [Concomitant]
  5. XALATAN [Concomitant]
  6. METOPROLOL SUCCINATE [Suspect]
     Route: 048

REACTIONS (3)
  - SICK SINUS SYNDROME [None]
  - SYNCOPE [None]
  - BRADYCARDIA [None]
